FAERS Safety Report 5796365-9 (Version None)
Quarter: 2008Q2

REPORT INFORMATION
  Report Type: 
  Country: None (occurrence: None)
  Receive Date: 20080630
  Receipt Date: 20080630
  Transmission Date: 20081010
  Serious: No
  Sender: FDA-Public Use
  Company Number: None

PATIENT
  Sex: Male
  Weight: 88.4514 kg

DRUGS (1)
  1. PROAIR HFA [Suspect]
     Indication: ASTHMA
     Dosage: PUFF Q 4-6H PRN QID PRN INHAL
     Route: 055
     Dates: start: 20080101, end: 20080629

REACTIONS (1)
  - PHARMACEUTICAL PRODUCT COMPLAINT [None]
